FAERS Safety Report 7543064-9 (Version None)
Quarter: 2011Q2

REPORT INFORMATION
  Report Type: 
  Country: None (occurrence: None)
  Receive Date: 20110613
  Receipt Date: 20110607
  Transmission Date: 20111010
  Serious: Yes (Hospitalization, Other)
  Sender: FDA-Public Use
  Company Number: US-PFIZER INC-2011124520

PATIENT
  Sex: Female
  Weight: 83.9 kg

DRUGS (6)
  1. HYZAAR [Concomitant]
     Indication: HYPERTENSION
     Dosage: 100/25 MG TWO TIMES A DAY
     Route: 048
     Dates: start: 19970101
  2. INSULIN [Concomitant]
     Indication: DIABETES MELLITUS
     Dosage: 300 MG, EVERY TWO DAYS
     Dates: start: 19970101
  3. ULTRACET [Concomitant]
     Indication: PAIN
     Dosage: UNK
     Route: 048
  4. COREG [Concomitant]
     Indication: CARDIAC DISORDER
     Dosage: 25 MG, 2X/DAY
     Route: 048
  5. LYRICA [Suspect]
     Indication: NEUROPATHY PERIPHERAL
     Dosage: 75 MG, 3X/DAY
     Route: 048
     Dates: end: 20101201
  6. VITAMIN B-12 [Concomitant]
     Dosage: UNK

REACTIONS (4)
  - THROMBOSIS [None]
  - BLOOD GLUCOSE INCREASED [None]
  - ARTERIAL OCCLUSIVE DISEASE [None]
  - BLOOD GLUCOSE DECREASED [None]
